FAERS Safety Report 22187891 (Version 1)
Quarter: 2023Q2

REPORT INFORMATION
  Report Type: Report from Study
  Country: US (occurrence: US)
  Receive Date: 20230408
  Receipt Date: 20230408
  Transmission Date: 20230721
  Serious: No
  Sender: FDA-Public Use
  Company Number: US-002147023-NVSC2023US081748

PATIENT
  Age: 39 Year
  Sex: Female

DRUGS (1)
  1. COSENTYX [Suspect]
     Active Substance: SECUKINUMAB
     Indication: Psoriasis
     Dosage: 300 MG, QW (150MG X2 FOR 5 WKS ONCE PER WK THEN ONCE PER MONTH)
     Route: 058
     Dates: start: 2022

REACTIONS (1)
  - Rebound psoriasis [Unknown]

NARRATIVE: CASE EVENT DATE: 20221101
